FAERS Safety Report 8603348-X (Version None)
Quarter: 2012Q3

REPORT INFORMATION
  Report Type: 
  Country: None (occurrence: None)
  Receive Date: 20120806
  Receipt Date: 20120731
  Transmission Date: 20120928
  Serious: Yes (Hospitalization)
  Sender: FDA-Public Use
  Company Number: USA/USA/12/0025280

PATIENT
  Age: 47 Year
  Sex: Female
  Weight: 61.2356 kg

DRUGS (1)
  1. OMEPRAZOLE MAGNESIUM [Suspect]
     Indication: PRODUCT USED FOR UNKNOWN INDICATION
     Dosage: 20.6 MG, ONCE
     Dates: start: 20120730

REACTIONS (2)
  - LOCAL SWELLING [None]
  - SWOLLEN TONGUE [None]
